FAERS Safety Report 5223611-2 (Version None)
Quarter: 2007Q1

REPORT INFORMATION
  Report Type: 
  Country: None (occurrence: None)
  Receive Date: 20070125
  Receipt Date: 20070108
  Transmission Date: 20070707
  Serious: Yes (Death, Other)
  Sender: FDA-Public Use
  Company Number: 200610328BBE

PATIENT
  Age: 4 Month
  Sex: Female
  Weight: 7 kg

DRUGS (23)
  1. PLASBUMIN-25 [Suspect]
     Indication: HAEMORRHAGE
     Dosage: SEE IMAGE
     Dates: start: 20061014
  2. PLASBUMIN-25 [Suspect]
     Indication: HAEMORRHAGE
     Dosage: SEE IMAGE
     Dates: start: 20061014
  3. PLASBUMIN-25 [Suspect]
     Indication: HAEMORRHAGE
     Dosage: SEE IMAGE
     Dates: start: 20061015
  4. ACETAMINOPHEN [Concomitant]
  5. ADALAT [Concomitant]
  6. CEFOTAXIME [Concomitant]
  7. CODEINE [Concomitant]
  8. DPTP/HIB [Concomitant]
  9. HIB [Concomitant]
  10. ENDOCRINE [Concomitant]
  11. FLAGYL [Concomitant]
  12. HEPALEAN [Concomitant]
  13. LASIX [Concomitant]
  14. MORPHINE [Concomitant]
  15. OCTREOTIDE ACETATE [Concomitant]
  16. PANTOPRAZOLE SODIUM [Concomitant]
  17. PEG-LYTE [Concomitant]
  18. PREVNAR [PNEUMOCOCCAL VACCINE] [Concomitant]
  19. RANITIDINE [Concomitant]
  20. URSODIOL [Concomitant]
  21. VANCOMYCIN HYDROCHLORIDE [Concomitant]
  22. VITAMIN K [Concomitant]
  23. ZANTAC [Concomitant]

REACTIONS (2)
  - PULMONARY OEDEMA [None]
  - TRANSFUSION-RELATED ACUTE LUNG INJURY [None]
